FAERS Safety Report 24396873 (Version 2)
Quarter: 2024Q4

REPORT INFORMATION
  Report Type: Spontaneous
  Country: US (occurrence: US)
  Receive Date: 20241004
  Receipt Date: 20241126
  Transmission Date: 20250114
  Serious: No
  Sender: BAYER HEALTHCARE LLC
  Company Number: US-BAYER-2024A141072

PATIENT
  Age: 67 Year
  Sex: Female

DRUGS (1)
  1. CLARITIN LIQUI-GELS [Suspect]
     Active Substance: LORATADINE
     Indication: Product used for unknown indication
     Dosage: 1 DF
     Route: 048
     Dates: start: 20240928, end: 20240928

REACTIONS (2)
  - Tongue discomfort [Recovering/Resolving]
  - Product physical issue [None]

NARRATIVE: CASE EVENT DATE: 20240928
